FAERS Safety Report 8096548-1 (Version None)
Quarter: 2012Q1

REPORT INFORMATION
  Report Type: 
  Country: None (occurrence: None)
  Receive Date: 20120129
  Receipt Date: 20111108
  Transmission Date: 20120608
  Serious: No
  Sender: FDA-Public Use
  Company Number: US-ABBOTT-11P-163-0872556-00

PATIENT
  Age: 23 Year
  Sex: Male

DRUGS (6)
  1. HUMIRA [Suspect]
     Indication: CROHN'S DISEASE
     Dates: start: 20070101
  2. NORCO [Concomitant]
     Indication: PAIN
  3. PREDNISONE TAB [Suspect]
     Indication: PRODUCT USED FOR UNKNOWN INDICATION
  4. NORCO [Concomitant]
     Indication: CROHN'S DISEASE
     Dosage: 10/500 3-4 DAILY
  5. KLONOPIN [Concomitant]
     Indication: ANXIETY
     Dosage: 3-4 DAILY
  6. AMBIEN [Concomitant]
     Indication: INSOMNIA
     Dosage: AT NIGHT

REACTIONS (3)
  - SOMNOLENCE [None]
  - STEROID WITHDRAWAL SYNDROME [None]
  - PANIC ATTACK [None]
